FAERS Safety Report 8874575 (Version 4)
Quarter: 2013Q1

REPORT INFORMATION
  Report Type: Spontaneous
  Country: US (occurrence: US)
  Receive Date: 20121030
  Receipt Date: 20130111
  Transmission Date: 20140127
  Serious: Yes (Other)
  Sender: FDA-Public Use
  Company Number: US-009507513-1210USA008366

PATIENT
  Age: 53 Year
  Sex: Female
  Weight: 108.84 kg

DRUGS (11)
  1. MIRALAX [Suspect]
     Indication: CONSTIPATION
     Dosage: 17 G, PRN
     Route: 048
     Dates: start: 201209, end: 201210
  2. BACTRIM [Suspect]
     Indication: BOWEL MOVEMENT IRREGULARITY
     Dosage: UNK
     Dates: end: 201210
  3. PRILOSEC [Concomitant]
     Indication: GASTROOESOPHAGEAL REFLUX DISEASE
     Dosage: 40 MG, UNK
  4. PROCHLORPERAZINE [Concomitant]
     Indication: PRODUCT USED FOR UNKNOWN INDICATION
     Dosage: 10 MG, UNK
  5. ONDANSETRON [Concomitant]
     Indication: PRODUCT USED FOR UNKNOWN INDICATION
     Dosage: 8 MG, BID
  6. TRIAMTERENE [Concomitant]
     Indication: OEDEMA
     Dosage: 37.5 MG, UNK
  7. OXYCODONE [Concomitant]
     Indication: ARTHRITIS
     Dosage: 10 MG, QD
  8. OXYCODONE [Concomitant]
     Dosage: 10 MG, BID
  9. DEXAMETHASONE [Suspect]
     Indication: PRODUCT USED FOR UNKNOWN INDICATION
     Dosage: 8 MG, QAM
  10. DEXAMETHASONE [Suspect]
     Dosage: 8 MG, QPM
  11. LACTULOSE [Concomitant]
     Indication: CONSTIPATION
     Dosage: UNK

REACTIONS (9)
  - Neoplasm malignant [Unknown]
  - Swollen tongue [Recovered/Resolved]
  - Swelling face [Recovered/Resolved]
  - Local swelling [Recovered/Resolved]
  - Urticaria [Recovered/Resolved]
  - Rash [Recovered/Resolved]
  - Diarrhoea [Recovered/Resolved]
  - Dysgeusia [Unknown]
  - Flatulence [Recovered/Resolved]
